FAERS Safety Report 23116964 (Version 1)
Quarter: 2023Q4

REPORT INFORMATION
  Report Type: Spontaneous
  Country: US (occurrence: None)
  Receive Date: 20231027
  Receipt Date: 20231027
  Transmission Date: 20240110
  Serious: No
  Sender: FDA-Public Use
  Company Number: None

PATIENT
  Age: 50 Year
  Sex: Female
  Weight: 42.75 kg

DRUGS (15)
  1. PREVIDENT 5000 PLUS SPEARMINT [Suspect]
     Active Substance: SODIUM FLUORIDE
     Indication: Dental caries
     Dates: start: 20230811
  2. HYDROXYCHLOROQUINE [Concomitant]
     Active Substance: HYDROXYCHLOROQUINE
  3. LIPITOR [Concomitant]
     Active Substance: ATORVASTATIN CALCIUM
  4. PILOCARPINE [Concomitant]
     Active Substance: PILOCARPINE
  5. FUROSEMIDE [Concomitant]
     Active Substance: FUROSEMIDE
  6. slow release KC [Concomitant]
  7. RETIN-A [Concomitant]
     Active Substance: TRETINOIN
  8. 12% ammonium lactate lotion [Concomitant]
  9. NITRO-BID [Concomitant]
     Active Substance: NITROGLYCERIN
  10. MINERALS\VITAMINS [Concomitant]
     Active Substance: MINERALS\VITAMINS
  11. VITAMIN C [Concomitant]
     Active Substance: ASCORBIC ACID
  12. VITAMIN D NOS [Concomitant]
     Active Substance: VITAMIN D NOS
  13. CRANBERRY [Concomitant]
     Active Substance: CRANBERRY
  14. MAGNESIUM [Concomitant]
     Active Substance: MAGNESIUM
  15. VITAMIN B-COMPLEX [Concomitant]
     Active Substance: DEXPANTHENOL\NIACINAMIDE\PYRIDOXINE HYDROCHLORIDE\RIBOFLAVIN 5^-PHOSPHATE SODIUM\THIAMINE HYDROCHLOR

REACTIONS (2)
  - Ageusia [None]
  - Dry mouth [None]

NARRATIVE: CASE EVENT DATE: 20231025
